FAERS Safety Report 18216741 (Version 1)
Quarter: 2020Q3

REPORT INFORMATION
  Report Type: Spontaneous
  Country: BE (occurrence: BE)
  Receive Date: 20200901
  Receipt Date: 20200901
  Transmission Date: 20201103
  Serious: Yes (Other)
  Sender: FDA-Public Use
  Company Number: BE-PFIZER INC-2020336238

PATIENT
  Age: 51 Year
  Sex: Female

DRUGS (4)
  1. LINEZOLID. [Suspect]
     Active Substance: LINEZOLID
     Indication: RHODOCOCCUS INFECTION
     Dosage: 600 MG, 2X/DAY
     Route: 042
     Dates: start: 20070104, end: 20070320
  2. RIFAMPIN. [Concomitant]
     Active Substance: RIFAMPIN
     Indication: RHODOCOCCUS INFECTION
     Dosage: 300 MG, 3X/DAY
     Route: 042
     Dates: start: 20061105, end: 20070329
  3. CLARITHROMYCIN. [Concomitant]
     Active Substance: CLARITHROMYCIN
     Indication: RHODOCOCCUS INFECTION
     Dosage: 500 MG, 2X/DAY
     Route: 042
     Dates: start: 20061017, end: 20061105
  4. MEROPENEM. [Concomitant]
     Active Substance: MEROPENEM
     Indication: RHODOCOCCUS INFECTION
     Dosage: 2 G, 3X/DAY
     Dates: start: 20061105, end: 20070329

REACTIONS (4)
  - Off label use [Unknown]
  - Polyneuropathy [Unknown]
  - Product use in unapproved indication [Unknown]
  - Incorrect product administration duration [Unknown]

NARRATIVE: CASE EVENT DATE: 2007
